FAERS Safety Report 8803289 (Version 2)
Quarter: 2013Q1

REPORT INFORMATION
  Report Type: Spontaneous
  Country: US (occurrence: US)
  Receive Date: 20120924
  Receipt Date: 20130207
  Transmission Date: 20140127
  Serious: Yes (Disabling)
  Sender: FDA-Public Use
  Company Number: US-ASTRAZENECA-2012SE73245

PATIENT
  Age: 62 Year
  Sex: Female

DRUGS (1)
  1. SYMBICORT PMDI [Suspect]
     Dosage: UNKNOWN DOSE, UNKNOWN FREQUENCY
     Route: 055

REACTIONS (4)
  - Rheumatoid arthritis [Unknown]
  - Musculoskeletal disorder [Unknown]
  - Nervousness [Unknown]
  - Drug dose omission [Unknown]
